FAERS Safety Report 20062209 (Version 1)
Quarter: 2021Q4

REPORT INFORMATION
  Report Type: Spontaneous
  Country: US (occurrence: US)
  Receive Date: 20211112
  Receipt Date: 20211112
  Transmission Date: 20220303
  Serious: No
  Sender: FDA-Public Use
  Company Number: US-MICRO LABS LIMITED-ML2021-00676

PATIENT
  Sex: Female
  Weight: 65.77 kg

DRUGS (4)
  1. AMOXICILLIN\CLAVULANIC ACID [Suspect]
     Active Substance: AMOXICILLIN\CLAVULANIC ACID
     Indication: Ear disorder
     Dosage: 875MG/125MCG; IN A PHARMACY VIAL
  2. NEOMYCIN AND POLYMYXIN B SULFATES AND HYDROCORTISONE [Suspect]
     Active Substance: HYDROCORTISONE\NEOMYCIN SULFATE\POLYMYXIN B SULFATE
     Indication: Ear disorder
  3. PREDNISONE [Suspect]
     Active Substance: PREDNISONE
     Indication: Ear disorder
  4. PFIZER-BIONTECH COVID-19 VACCINE [Concomitant]
     Active Substance: TOZINAMERAN
     Dosage: ONCE BY INJECTION IN THE LEFT ARM
     Dates: start: 20210118

REACTIONS (1)
  - Drug ineffective [Unknown]
